FAERS Safety Report 9793064 (Version 1)
Quarter: 2013Q4

REPORT INFORMATION
  Report Type: Spontaneous
  Country: US (occurrence: None)
  Receive Date: 20131231
  Receipt Date: 20131231
  Transmission Date: 20140711
  Serious: Yes (Disabling)
  Sender: FDA-Public Use
  Company Number: None

PATIENT
  Age: 38 Year
  Sex: Female
  Weight: 54.43 kg

DRUGS (1)
  1. HYDROCORTISONE TABLETS 10MG [Suspect]
     Indication: ADDISON^S DISEASE
     Dosage: 25MG/15MG/10MG
     Route: 048
     Dates: start: 20131216, end: 20131227

REACTIONS (8)
  - Influenza like illness [None]
  - Arthralgia [None]
  - Myalgia [None]
  - Fatigue [None]
  - Nausea [None]
  - Palpitations [None]
  - Product substitution issue [None]
  - Product quality issue [None]
